FAERS Safety Report 17112092 (Version 1)
Quarter: 2019Q4

REPORT INFORMATION
  Report Type: Spontaneous
  Country: CA (occurrence: CA)
  Receive Date: 20191204
  Receipt Date: 20191204
  Transmission Date: 20200122
  Serious: Yes (Other)
  Sender: FDA-Public Use
  Company Number: CA-ASTRAZENECA-2019SF69686

PATIENT
  Sex: Female

DRUGS (4)
  1. CLODRONATE [Concomitant]
     Active Substance: CLODRONATE DISODIUM
     Route: 065
     Dates: start: 201903
  2. ARIMIDEX [Concomitant]
     Active Substance: ANASTROZOLE
     Route: 048
     Dates: start: 201807
  3. FASLODEX [Suspect]
     Active Substance: FULVESTRANT
     Route: 030
  4. IBRANCE [Suspect]
     Active Substance: PALBOCICLIB
     Route: 048

REACTIONS (1)
  - Malignant neoplasm progression [Unknown]
